FAERS Safety Report 4362067-9 (Version None)
Quarter: 2004Q2

REPORT INFORMATION
  Report Type: 
  Country: None (occurrence: None)
  Receive Date: 20040521
  Receipt Date: 20040227
  Transmission Date: 20050107
  Serious: No
  Sender: FDA-Public Use
  Company Number: US-GLAXOSMITHKLINE-A0500366A

PATIENT
  Age: 28 Year
  Sex: Female

DRUGS (4)
  1. WELLBUTRIN [Suspect]
     Dosage: 300MG PER DAY
     Route: 048
     Dates: start: 20040202, end: 20040220
  2. ASACOL [Concomitant]
  3. PROTONIX [Concomitant]
  4. BIRTH CONTROL [Concomitant]

REACTIONS (1)
  - URTICARIA [None]
